FAERS Safety Report 8332725-X (Version None)
Quarter: 2012Q2

REPORT INFORMATION
  Report Type: 
  Country: None (occurrence: None)
  Receive Date: 20120503
  Receipt Date: 20120418
  Transmission Date: 20120825
  Serious: Yes (Death, Life-Threatening, Hospitalization, Other)
  Sender: FDA-Public Use
  Company Number: CN-JNJFOC-20110805076

PATIENT
  Sex: Female
  Weight: 60 kg

DRUGS (14)
  1. UNKNOWN MEDICATION [Concomitant]
     Route: 065
  2. NIZORAL [Suspect]
     Indication: ONYCHOMYCOSIS
     Dosage: POSSIBLY FOR 10 DAYS AND TAKEN ABOUT 10 TABLETS
     Route: 048
     Dates: start: 20110317, end: 20110617
  3. UNKNOWN MEDICATION [Concomitant]
     Indication: GASTRIC DISORDER
     Route: 065
  4. METHYLPREDNISOLONE [Concomitant]
     Indication: PROPHYLAXIS
     Route: 065
  5. ALPROSTADIL [Concomitant]
     Indication: PROPHYLAXIS
     Route: 065
  6. GLUTATHIONE [Concomitant]
     Indication: DETOXIFICATION
     Route: 065
  7. METHYLPREDNISOLONE [Concomitant]
     Indication: DETOXIFICATION
     Route: 065
  8. UNKNOWN MEDICATION [Concomitant]
     Indication: DETOXIFICATION
     Route: 065
  9. ALPROSTADIL [Concomitant]
     Indication: DETOXIFICATION
     Route: 065
  10. GLYCYRRHIZIC ACID, AMMONIUM SALT [Concomitant]
     Indication: DETOXIFICATION
     Route: 065
  11. GLUTATHIONE [Concomitant]
     Indication: PROPHYLAXIS
     Route: 065
  12. GLYCYRRHIZIC ACID, AMMONIUM SALT [Concomitant]
     Indication: PROPHYLAXIS
     Route: 065
  13. UNKNOWN MEDICATION [Concomitant]
     Indication: PROPHYLAXIS
     Route: 065
  14. UNKNOWN MEDICATION [Concomitant]
     Route: 065

REACTIONS (6)
  - DISSEMINATED INTRAVASCULAR COAGULATION [None]
  - ABDOMINAL PAIN UPPER [None]
  - HEPATITIS [None]
  - DIZZINESS [None]
  - SUBACUTE HEPATIC FAILURE [None]
  - HEPATIC ENCEPHALOPATHY [None]
